FAERS Safety Report 10528902 (Version 1)
Quarter: 2014Q4

REPORT INFORMATION
  Report Type: Spontaneous
  Country: US (occurrence: None)
  Receive Date: 20141016
  Receipt Date: 20141016
  Transmission Date: 20150528
  Serious: Yes (Hospitalization)
  Sender: FDA-Public Use
  Company Number: None

PATIENT
  Age: 79 Year
  Sex: Male
  Weight: 71 kg

DRUGS (1)
  1. BENDAMUSTINE [Suspect]
     Active Substance: BENDAMUSTINE
     Indication: CHRONIC LYMPHOCYTIC LEUKAEMIA
     Dosage: 130 MG, OTHER
     Route: 042
     Dates: start: 20110321, end: 20130916

REACTIONS (12)
  - Palpitations [None]
  - Neutropenia [None]
  - Anaemia [None]
  - Chills [None]
  - Tachycardia [None]
  - Vomiting [None]
  - Respiratory depression [None]
  - Hypotension [None]
  - Infusion related reaction [None]
  - Fatigue [None]
  - Pyrexia [None]
  - Infection [None]

NARRATIVE: CASE EVENT DATE: 20130916
